FAERS Safety Report 23942122 (Version 1)
Quarter: 2024Q2

REPORT INFORMATION
  Report Type: Spontaneous
  Country: JP (occurrence: JP)
  Receive Date: 20240605
  Receipt Date: 20240605
  Transmission Date: 20240716
  Serious: Yes (Other)
  Sender: FDA-Public Use
  Company Number: JP-BAYER-2024A075930

PATIENT
  Age: 6 Decade
  Sex: Male

DRUGS (3)
  1. KERENDIA [Suspect]
     Active Substance: FINERENONE
     Indication: Diabetes mellitus
     Dosage: 10 MG, QD
     Route: 048
     Dates: start: 202311
  2. KERENDIA [Suspect]
     Active Substance: FINERENONE
     Indication: Chronic kidney disease
  3. JARDIANCE [Concomitant]
     Active Substance: EMPAGLIFLOZIN
     Indication: Diabetes mellitus

REACTIONS (2)
  - Blood creatinine increased [Recovered/Resolved]
  - Blood glucose increased [Recovered/Resolved with Sequelae]

NARRATIVE: CASE EVENT DATE: 20240201
